FAERS Safety Report 5931913-7 (Version None)
Quarter: 2008Q4

REPORT INFORMATION
  Report Type: 
  Country: None (occurrence: None)
  Receive Date: 20081027
  Receipt Date: 20081016
  Transmission Date: 20090506
  Serious: Yes (Hospitalization)
  Sender: FDA-Public Use
  Company Number: JP-PFIZER INC-2008087898

PATIENT
  Age: 61 Year
  Sex: Male

DRUGS (3)
  1. EPLERENONE [Suspect]
     Indication: HYPERTENSION
     Dosage: DAILY DOSE:50MG
     Route: 048
     Dates: start: 20080809, end: 20080926
  2. OLMETEC [Concomitant]
     Indication: HYPERTENSION
     Dosage: DAILY DOSE:20MG
     Route: 048
     Dates: end: 20081003
  3. LIPIDIL [Concomitant]
     Indication: DYSLIPIDAEMIA
     Dosage: DAILY DOSE:100MG
     Route: 048
     Dates: end: 20081003

REACTIONS (1)
  - RENAL FAILURE ACUTE [None]
